FAERS Safety Report 15305619 (Version 1)
Quarter: 2018Q3

REPORT INFORMATION
  Report Type: Report from Study
  Country: TR (occurrence: TR)
  Receive Date: 20180822
  Receipt Date: 20180822
  Transmission Date: 20181010
  Serious: Yes (Death, Other)
  Sender: FDA-Public Use
  Company Number: TR-SUN PHARMACEUTICAL INDUSTRIES LTD-2018RR-182144

PATIENT

DRUGS (3)
  1. PRAMIPEXOLE. [Suspect]
     Active Substance: PRAMIPEXOLE
     Dosage: 0.75 MG, DAILY; 1ST TRIMESTER (5?12 WEEKS), 2ND TRIMESTER, 3RD TRIMESTER
     Route: 064
  2. PRAMIPEXOLE. [Suspect]
     Active Substance: PRAMIPEXOLE
     Indication: PRODUCT USED FOR UNKNOWN INDICATION
     Dosage: 1.5 MG, DAILY; AT ONSET OF PREGNANCY; 1ST TRIMESTER (0?5WEEKS)
     Route: 064
  3. RASAGILINE. [Suspect]
     Active Substance: RASAGILINE
     Indication: PRODUCT USED FOR UNKNOWN INDICATION
     Dosage: 1 MG, DAILY; AT ONSET OF PREGNANCY; 1ST TRIMESTER (0?5WEEKS)
     Route: 064

REACTIONS (2)
  - Foetal exposure during pregnancy [Unknown]
  - Hepatic failure [Fatal]
